FAERS Safety Report 25306767 (Version 2)
Quarter: 2025Q2

REPORT INFORMATION
  Report Type: Spontaneous
  Country: US (occurrence: US)
  Receive Date: 20250513
  Receipt Date: 20250524
  Transmission Date: 20250717
  Serious: No
  Sender: CSL BEHRING
  Company Number: US-BEH-2025204282

PATIENT
  Age: 60 Year
  Sex: Female

DRUGS (8)
  1. PRIVIGEN [Suspect]
     Active Substance: HUMAN IMMUNOGLOBULIN G
     Indication: Vitamin D deficiency
     Route: 042
  2. PRIVIGEN [Suspect]
     Active Substance: HUMAN IMMUNOGLOBULIN G
     Route: 042
     Dates: start: 202405
  3. BUPROPION [Concomitant]
     Active Substance: BUPROPION
  4. DULOXETINE HYDROCHLORIDE [Concomitant]
     Active Substance: DULOXETINE HYDROCHLORIDE
  5. FINASTERIDE [Concomitant]
     Active Substance: FINASTERIDE
  6. NOVOLOG [Concomitant]
     Active Substance: INSULIN ASPART
  7. NUVIGIL [Concomitant]
     Active Substance: ARMODAFINIL
  8. RAMIPRIL [Concomitant]
     Active Substance: RAMIPRIL

REACTIONS (5)
  - Headache [Recovered/Resolved]
  - Product use in unapproved indication [Unknown]
  - Depression [Unknown]
  - Psychiatric symptom [Unknown]
  - Headache [Recovered/Resolved]

NARRATIVE: CASE EVENT DATE: 20250401
